FAERS Safety Report 8071506-1 (Version None)
Quarter: 2012Q1

REPORT INFORMATION
  Report Type: 
  Country: None (occurrence: None)
  Receive Date: 20120125
  Receipt Date: 20120117
  Transmission Date: 20120608
  Serious: Yes (Other)
  Sender: FDA-Public Use
  Company Number: CHPA2012US001620

PATIENT
  Age: 48 Year
  Sex: Female

DRUGS (1)
  1. EXCEDRIN EXTRA STRENGTH CAPLETS [Suspect]
     Indication: HEADACHE
     Dosage: 2-6 DF, PRN
     Route: 048
     Dates: start: 20110101, end: 20120116

REACTIONS (11)
  - KIDNEY INFECTION [None]
  - PYREXIA [None]
  - FEELING ABNORMAL [None]
  - PALPITATIONS [None]
  - ABDOMINAL PAIN LOWER [None]
  - URINARY TRACT INFECTION [None]
  - NEPHRITIS [None]
  - MENSTRUATION IRREGULAR [None]
  - SPLEEN DISORDER [None]
  - OFF LABEL USE [None]
  - DEHYDRATION [None]
